FAERS Safety Report 7469490-4 (Version None)
Quarter: 2011Q2

REPORT INFORMATION
  Report Type: 
  Country: None (occurrence: None)
  Receive Date: 20110506
  Receipt Date: 20110506
  Transmission Date: 20111010
  Serious: Yes (Life-Threatening, Hospitalization, Disabling, Other)
  Sender: FDA-Public Use
  Company Number: None

PATIENT
  Age: 47 Year
  Sex: Female
  Weight: 70.7611 kg

DRUGS (1)
  1. CEFTIN [Suspect]
     Indication: PHARYNGITIS
     Dosage: 1 TABLET TWICE DAILY MOUTH
     Route: 048
     Dates: start: 19960707, end: 19960716

REACTIONS (3)
  - SYSTEMIC LUPUS ERYTHEMATOSUS [None]
  - FEELING ABNORMAL [None]
  - PALPITATIONS [None]
